FAERS Safety Report 10587876 (Version 3)
Quarter: 2014Q4

REPORT INFORMATION
  Report Type: Spontaneous
  Country: PT (occurrence: PT)
  Receive Date: 20141117
  Receipt Date: 20141124
  Transmission Date: 20150529
  Serious: Yes (Other)
  Sender: FDA-Public Use
  Company Number: PT-US-EMD SERONO, INC.-7333699

PATIENT
  Sex: Female

DRUGS (4)
  1. REBIF [Suspect]
     Active Substance: INTERFERON BETA-1A
     Indication: PRODUCT USED FOR UNKNOWN INDICATION
     Route: 058
     Dates: start: 200607, end: 201402
  2. AMITRIPTILINA [Concomitant]
     Active Substance: AMITRIPTYLINE HYDROCHLORIDE
     Indication: NEURALGIA
     Route: 048
     Dates: start: 2004
  3. REBIF [Suspect]
     Active Substance: INTERFERON BETA-1A
     Route: 058
     Dates: start: 201405
  4. GABAPENTIN. [Concomitant]
     Active Substance: GABAPENTIN
     Indication: NEURALGIA
     Route: 048
     Dates: start: 2004

REACTIONS (3)
  - Influenza like illness [Unknown]
  - Pain [Recovered/Resolved]
  - Uterine cancer [Recovered/Resolved]

NARRATIVE: CASE EVENT DATE: 201409
